FAERS Safety Report 5218148-0 (Version None)
Quarter: 2007Q1

REPORT INFORMATION
  Report Type: 
  Country: None (occurrence: None)
  Receive Date: 20061130
  Receipt Date: 20060915
  Transmission Date: 20070707
  Serious: Yes (Other)
  Sender: FDA-Public Use
  Company Number: US200609003448

PATIENT
  Sex: 0

DRUGS (1)
  1. ZYPREXA [Suspect]
     Indication: DRUG USE FOR UNKNOWN INDICATION
     Dosage: UNK, UNK, UNK
     Dates: start: 19980201, end: 20020801

REACTIONS (2)
  - DIABETES MELLITUS [None]
  - PANCREATITIS [None]
